FAERS Safety Report 8883142 (Version 2)
Quarter: 2012Q4

REPORT INFORMATION
  Report Type: Report from Study
  Country: FR (occurrence: FR)
  Receive Date: 20121102
  Receipt Date: 20121207
  Transmission Date: 20130627
  Serious: No
  Sender: FDA-Public Use
  Company Number: FR-ROCHE-1151550

PATIENT
  Age: 45 Year
  Sex: Female
  Weight: 67 kg

DRUGS (13)
  1. VEMURAFENIB [Suspect]
     Indication: METASTATIC MALIGNANT MELANOMA
     Dosage: Last dose prior to SAE:27/Oct/2012
     Route: 048
     Dates: start: 20120628
  2. LAMALINE [Concomitant]
     Indication: ANALGESIC THERAPY
     Route: 048
     Dates: start: 201205
  3. NAPROXENE [Concomitant]
     Route: 048
     Dates: start: 201205
  4. SEROPLEX [Concomitant]
     Route: 048
     Dates: start: 2012
  5. LAROXYL [Concomitant]
     Dosage: form: tears
     Route: 048
     Dates: start: 2012
  6. OGAST [Concomitant]
     Route: 048
     Dates: start: 2012
  7. TRI-MINULET [Concomitant]
     Indication: ORAL CONTRACEPTION
     Route: 048
  8. CONTRAMAL [Concomitant]
     Indication: ANALGESIC THERAPY
     Route: 048
     Dates: start: 20120626, end: 20120626
  9. TRAMADOL [Concomitant]
     Indication: ANALGESIC THERAPY
     Route: 048
     Dates: start: 20120627
  10. ACTISKENAN [Concomitant]
     Indication: ANALGESIC THERAPY
     Route: 048
     Dates: start: 20120627
  11. DOLIPRANE [Concomitant]
     Route: 048
     Dates: start: 20120627
  12. ZOMETA [Concomitant]
     Indication: PROPHYLAXIS
     Route: 042
     Dates: start: 20120712, end: 20120712
  13. SKENAN [Concomitant]
     Indication: ANALGESIC THERAPY
     Route: 048
     Dates: start: 20120712

REACTIONS (1)
  - Convulsion [Recovered/Resolved]
